FAERS Safety Report 8290199 (Version 4)
Quarter: 2013Q4

REPORT INFORMATION
  Report Type: Spontaneous
  Country: US (occurrence: None)
  Receive Date: 20111122
  Receipt Date: 20131226
  Transmission Date: 20140711
  Serious: Yes (Other)
  Sender: FDA-Public Use
  Company Number: PHHY2011US48454

PATIENT
  Age: 47 Year
  Sex: Male
  Weight: 85.3 kg

DRUGS (12)
  1. GILENYA [Suspect]
     Indication: MULTIPLE SCLEROSIS
     Route: 048
     Dates: start: 201102
  2. LIPITOR [Suspect]
     Route: 048
  3. TIZANIDINE HYDROCHLORIDE [Concomitant]
  4. CIALIS [Concomitant]
  5. MULTI-VITAMINS (CALCIUM PANTOTHENATE, FOLIC ACID, VITAMINS NOS) [Concomitant]
  6. POLYETHYLENE GLYCOL 3350 (MACROGOL 3350) [Concomitant]
  7. NSAID^S(NO INGREDIENTS/SUBSTANCES) [Concomitant]
  8. LYRICA [Concomitant]
  9. OXYCODONE (OXYCODONE) [Concomitant]
  10. VITAMIN D3 (COLECALCIFEROL) [Concomitant]
  11. FISH OIL (FISH OIL) [Concomitant]
  12. ECHINACEA ANGUSTIFOLIA [Concomitant]

REACTIONS (3)
  - Liver function test abnormal [None]
  - Aspartate aminotransferase increased [None]
  - Alanine aminotransferase increased [None]
